FAERS Safety Report 5286976-1 (Version None)
Quarter: 2007Q1

REPORT INFORMATION
  Report Type: 
  Country: None (occurrence: None)
  Receive Date: 20070329
  Receipt Date: 20070313
  Transmission Date: 20070707
  Serious: Yes (Hospitalization)
  Sender: FDA-Public Use
  Company Number: DSA_29632_2007

PATIENT
  Age: 74 Year
  Sex: Male

DRUGS (5)
  1. RENIVACE [Suspect]
     Dosage: 10 MG BID PO
     Route: 048
  2. WARFARIN SODIUM [Concomitant]
  3. HALFDIGOXIN [Concomitant]
  4. MEVALOTIN [Concomitant]
  5. PLETAL [Concomitant]

REACTIONS (3)
  - CARDIAC FAILURE [None]
  - CONDITION AGGRAVATED [None]
  - OVERDOSE [None]
